FAERS Safety Report 10548783 (Version 1)
Quarter: 2014Q4

REPORT INFORMATION
  Report Type: Spontaneous
  Country: US (occurrence: None)
  Receive Date: 20141027
  Receipt Date: 20141027
  Transmission Date: 20150529
  Serious: Yes (Other)
  Sender: FDA-Public Use
  Company Number: None

PATIENT
  Age: 29 Year
  Sex: Male
  Weight: 84.37 kg

DRUGS (1)
  1. CIPRO [Suspect]
     Active Substance: CIPROFLOXACIN HYDROCHLORIDE
     Indication: EYELID INFECTION
     Dosage: Z PACK: TAKE AS DIRECTED
     Route: 048
     Dates: start: 20141018, end: 20141022

REACTIONS (2)
  - Peroneal nerve palsy [None]
  - Hypoaesthesia [None]

NARRATIVE: CASE EVENT DATE: 20141023
